FAERS Safety Report 9125377 (Version 2)
Quarter: 2013Q2

REPORT INFORMATION
  Report Type: Spontaneous
  Country: FR (occurrence: FR)
  Receive Date: 20130227
  Receipt Date: 20130403
  Transmission Date: 20140414
  Serious: Yes (Life-Threatening, Other)
  Sender: FDA-Public Use
  Company Number: FR-UCBSA-079223

PATIENT
  Age: 12 Year
  Sex: Male

DRUGS (7)
  1. KEPPRA [Suspect]
     Indication: EPILEPSY
     Dosage: DAILY DOSE: 1 UNIT
     Route: 048
     Dates: start: 20121229, end: 20130112
  2. KEPPRA [Suspect]
     Indication: EPILEPSY
     Dates: start: 2008, end: 2012
  3. GARDENAL [Suspect]
     Indication: EPILEPSY
     Dosage: DAILY DOSE: 1 UNIT
     Route: 048
     Dates: start: 20121224, end: 20130112
  4. RIVOTRIL [Concomitant]
     Dosage: UNKNOWN DOSE
     Dates: start: 201212, end: 20130114
  5. DEPAKINE [Concomitant]
     Dosage: UNKNOWN DOSE
  6. MICROPAKINE [Concomitant]
     Dosage: UNKNOWN DOSE
     Dates: start: 20121223
  7. ZARONTIN [Concomitant]
     Dosage: UNKNOWN DOSE
     Dates: start: 201212

REACTIONS (4)
  - Toxic epidermal necrolysis [Recovered/Resolved]
  - Streptococcal infection [Unknown]
  - Staphylococcal infection [Unknown]
  - Renal tubular necrosis [Unknown]
